FAERS Safety Report 14074894 (Version 1)
Quarter: 2017Q4

REPORT INFORMATION
  Report Type: Spontaneous
  Country: US (occurrence: US)
  Receive Date: 20171011
  Receipt Date: 20171011
  Transmission Date: 20180321
  Serious: No
  Sender: FDA-Public Use
  Company Number: US-TARO-2017TAR00502

PATIENT
  Age: 52 Year
  Sex: Female
  Weight: 63.49 kg

DRUGS (4)
  1. METRONIDAZOLE GEL USP, 1% [Suspect]
     Active Substance: METRONIDAZOLE
     Indication: ACNE
     Dosage: UNK UNK, 2X/DAY
     Route: 061
     Dates: start: 20170606, end: 201706
  2. METRONIDAZOLE GEL USP, 1% [Suspect]
     Active Substance: METRONIDAZOLE
     Dosage: UNK UNK, 2X/DAY
     Route: 061
     Dates: start: 201706, end: 201706
  3. SYNTHROID [Concomitant]
     Active Substance: LEVOTHYROXINE SODIUM
     Dosage: 175 ?G, UNK
  4. SYNTHROID [Concomitant]
     Active Substance: LEVOTHYROXINE SODIUM
     Dosage: 150 ?G, EVERY 48 HOURS

REACTIONS (4)
  - Product quality issue [Recovered/Resolved]
  - Off label use [Recovered/Resolved]
  - Application site pain [Recovered/Resolved]
  - Inappropriate schedule of drug administration [Recovered/Resolved]

NARRATIVE: CASE EVENT DATE: 20170606
